FAERS Safety Report 14425107 (Version 1)
Quarter: 2018Q1

REPORT INFORMATION
  Report Type: Spontaneous
  Country: JP (occurrence: JP)
  Receive Date: 20180123
  Receipt Date: 20180123
  Transmission Date: 20180509
  Serious: Yes (Hospitalization, Other)
  Sender: FDA-Public Use
  Company Number: JP-BAYER-2018-008330

PATIENT
  Sex: Male

DRUGS (1)
  1. STIVARGA [Suspect]
     Active Substance: REGORAFENIB
     Indication: COLON CANCER
     Dosage: DAILY DOSE 120 MG,3 WEEKS ON 1 WEEK OFF
     Route: 048
     Dates: start: 20171018, end: 20180111

REACTIONS (2)
  - Metastases to liver [Not Recovered/Not Resolved]
  - Colon cancer [None]

NARRATIVE: CASE EVENT DATE: 20180111
